FAERS Safety Report 5358214-2 (Version None)
Quarter: 2007Q2

REPORT INFORMATION
  Report Type: 
  Country: None (occurrence: None)
  Receive Date: 20070530
  Receipt Date: 20061003
  Transmission Date: 20071010
  Serious: Yes (Other)
  Sender: FDA-Public Use
  Company Number: US200604004261

PATIENT
  Age: 27 Year
  Sex: Male
  Weight: 120.2 kg

DRUGS (8)
  1. ZYPREXA(OLANZAPINE UNKOWN FORMULATION) UNKNOWN [Suspect]
     Indication: DEPRESSION
     Dosage: 5 MG
     Dates: start: 20030107, end: 20030729
  2. CLOZARIL [Concomitant]
  3. HYDROCHLOROTHIAZIDE [Concomitant]
  4. CITALOPRAM HYDROBROMIDE [Concomitant]
  5. PAROXETINE [Concomitant]
  6. ATENOLOL [Concomitant]
  7. METOPROLOL TARTRATE [Concomitant]
  8. PREDNISONE [Concomitant]

REACTIONS (2)
  - DIABETES MELLITUS [None]
  - DIABETIC KETOACIDOSIS [None]
